FAERS Safety Report 5114161-2 (Version None)
Quarter: 2006Q3

REPORT INFORMATION
  Report Type: 
  Country: None (occurrence: None)
  Receive Date: 20060925
  Receipt Date: 20060918
  Transmission Date: 20061208
  Serious: Yes (Other)
  Sender: FDA-Public Use
  Company Number: US-JNJFOC-20060504027

PATIENT
  Sex: Female
  Weight: 56.7 kg

DRUGS (2)
  1. ELMIRON [Suspect]
     Indication: CYSTITIS INTERSTITIAL
     Dosage: 500 MG
     Route: 048
  2. ELMIRON [Suspect]
     Route: 067

REACTIONS (3)
  - CONSTIPATION [None]
  - STOMACH DISCOMFORT [None]
  - WEIGHT DECREASED [None]
